FAERS Safety Report 7521481-0 (Version None)
Quarter: 2011Q2

REPORT INFORMATION
  Report Type: 
  Country: None (occurrence: None)
  Receive Date: 20110603
  Receipt Date: 20110128
  Transmission Date: 20111010
  Serious: Yes (Hospitalization, Other)
  Sender: FDA-Public Use
  Company Number: US-BAYER-201022310NA

PATIENT
  Age: 27 Year
  Sex: Female
  Weight: 99.773 kg

DRUGS (11)
  1. SINGULAIR [Concomitant]
     Dosage: UNK UNK, QD
     Dates: start: 20040101
  2. IRON SULFATETHIAMIN COMPOUND TAB [Concomitant]
  3. ADVAIR DISKUS 100/50 [Concomitant]
     Dosage: UNK UNK, QD
     Dates: start: 20050101, end: 20061001
  4. ALBUTEROL SULFATE AUTOHALER [Concomitant]
     Dosage: UNK
  5. YASMIN [Suspect]
     Indication: CONTRACEPTION
     Dosage: UNK
     Route: 048
     Dates: start: 20031001, end: 20061001
  6. YASMIN [Suspect]
     Dosage: UNK
     Dates: start: 20060601, end: 20060601
  7. BICILLIN [Concomitant]
     Indication: PROPHYLAXIS
     Dosage: UNK
     Dates: start: 19870101
  8. PENICILLIN G BENZATHINE [Concomitant]
     Dosage: 600.000 U/ML, UNK
     Route: 030
  9. PARENTERAL FLUIDS [Concomitant]
  10. YASMIN [Suspect]
     Dosage: UNK
     Dates: start: 20040701, end: 20041001
  11. FOLIC ACID [Concomitant]

REACTIONS (3)
  - DYSPNOEA [None]
  - CHEST PAIN [None]
  - PULMONARY EMBOLISM [None]
